FAERS Safety Report 7903059-X (Version None)
Quarter: 2011Q4

REPORT INFORMATION
  Report Type: 
  Country: None (occurrence: None)
  Receive Date: 20111107
  Receipt Date: 20111024
  Transmission Date: 20120403
  Serious: Yes (Life-Threatening, Hospitalization, Other)
  Sender: FDA-Public Use
  Company Number: 2011P1009717

PATIENT
  Age: 53 Year
  Sex: Male

DRUGS (3)
  1. DANAPAROID [Concomitant]
  2. HEPARIN [Suspect]
  3. ENOXAPARIN [Concomitant]

REACTIONS (7)
  - LIVER TRANSPLANT [None]
  - SURGICAL PROCEDURE REPEATED [None]
  - HEPARIN-INDUCED THROMBOCYTOPENIA [None]
  - BUDD-CHIARI SYNDROME [None]
  - HEPATIC FUNCTION ABNORMAL [None]
  - HEPATIC INFARCTION [None]
  - COAGULATION FACTOR V LEVEL DECREASED [None]
